FAERS Safety Report 6336226 (Version 6)
Quarter: 2018Q4

REPORT INFORMATION
  Report Type: Spontaneous
  Country: JP (occurrence: JP)
  Receive Date: 20070619
  Receipt Date: 20181211
  Transmission Date: 20190205
  Serious: Yes (Hospitalization, Other)
  Sender: FDA-Public Use
  Company Number: PHBS2007JP09841

PATIENT
  Sex: Female

DRUGS (8)
  1. RETICOLAN [Concomitant]
     Active Substance: METHYLCOBALAMIN
     Indication: PRODUCT USED FOR UNKNOWN INDICATION
     Dosage: 1500 MG, QD
     Route: 048
  2. DEPAS [Concomitant]
     Active Substance: ETIZOLAM
     Indication: PRODUCT USED FOR UNKNOWN INDICATION
     Dosage: 1 MG, QD
     Route: 048
  3. NEO DOPASTON [Concomitant]
     Indication: PRODUCT USED FOR UNKNOWN INDICATION
     Dosage: 150 MG, QD
     Route: 048
  4. SELBEX [Concomitant]
     Active Substance: TEPRENONE
     Indication: PRODUCT USED FOR UNKNOWN INDICATION
     Dosage: 1.5 G, QD
     Route: 048
  5. COMTAN [Suspect]
     Active Substance: ENTACAPONE
     Indication: PARKINSON^S DISEASE
     Dosage: 100 MG, QID
     Route: 048
     Dates: start: 20070419
  6. COMTAN [Suspect]
     Active Substance: ENTACAPONE
     Dosage: 100 MG, QID
     Route: 048
     Dates: start: 200705, end: 200705
  7. CABASER [Concomitant]
     Active Substance: CABERGOLINE
     Indication: PRODUCT USED FOR UNKNOWN INDICATION
     Dosage: 1 MG, QD
     Route: 048
  8. FP [Concomitant]
     Active Substance: SELEGILINE HYDROCHLORIDE
     Indication: PARKINSON^S DISEASE
     Dosage: 2.5 MG, QD
     Route: 048

REACTIONS (9)
  - Vitreous floaters [Unknown]
  - Productive cough [Recovering/Resolving]
  - Organising pneumonia [Recovering/Resolving]
  - Cough [Recovering/Resolving]
  - Rhinalgia [Recovering/Resolving]
  - Eye pain [Unknown]
  - Concomitant disease progression [Recovering/Resolving]
  - Rhinorrhoea [Recovering/Resolving]
  - Retinal haemorrhage [Unknown]

NARRATIVE: CASE EVENT DATE: 20070419
